FAERS Safety Report 7565057-8 (Version None)
Quarter: 2011Q2

REPORT INFORMATION
  Report Type: 
  Country: None (occurrence: None)
  Receive Date: 20110622
  Receipt Date: 20110426
  Transmission Date: 20111010
  Serious: Yes (Death)
  Sender: FDA-Public Use
  Company Number: US-MYLANLABS-2011S1008399

PATIENT
  Age: 65 Year
  Sex: Male

DRUGS (10)
  1. SEROQUEL [Concomitant]
  2. ZELDILON [Concomitant]
     Route: 062
  3. CLOZAPINE [Suspect]
     Route: 048
  4. ZOLPIDEM [Concomitant]
  5. LACTULOSE [Concomitant]
  6. DEPLIN [Concomitant]
  7. NAMENDA [Concomitant]
  8. TAMSULOSIN HCL [Concomitant]
  9. POLYETHYLENE GLYCOL [Concomitant]
  10. TRAZODONE HCL [Concomitant]

REACTIONS (1)
  - DEATH [None]
